FAERS Safety Report 7398321-6 (Version None)
Quarter: 2011Q2

REPORT INFORMATION
  Report Type: 
  Country: None (occurrence: None)
  Receive Date: 20110406
  Receipt Date: 20110325
  Transmission Date: 20111010
  Serious: No
  Sender: FDA-Public Use
  Company Number: US-ELI_LILLY_AND_COMPANY-US201011000201

PATIENT
  Age: 73 Year
  Sex: Female
  Weight: 80.272 kg

DRUGS (6)
  1. FORTEO [Suspect]
     Indication: OSTEOPOROSIS
     Dosage: 20 UG, DAILY (1/D)
     Route: 058
     Dates: start: 20100801
  2. NIFEDIPINE [Concomitant]
     Indication: BLOOD PRESSURE
  3. CALCIUM [Concomitant]
  4. CITALOPRAM [Concomitant]
  5. VITAMIN D [Concomitant]
  6. MULTI-VITAMIN [Concomitant]

REACTIONS (1)
  - EXOSTOSIS [None]
